FAERS Safety Report 13100159 (Version 1)
Quarter: 2017Q1

REPORT INFORMATION
  Report Type: Spontaneous
  Country: US (occurrence: US)
  Receive Date: 20170110
  Receipt Date: 20170110
  Transmission Date: 20170428
  Serious: No
  Sender: FDA-Public Use
  Company Number: US-DRREDDYS-USA/USA/16/0082124

PATIENT
  Age: 80 Year
  Sex: Female

DRUGS (1)
  1. HABITROL [Suspect]
     Active Substance: NICOTINE
     Indication: SMOKING CESSATION THERAPY
     Route: 061
     Dates: start: 20160712, end: 20160803

REACTIONS (6)
  - Treatment noncompliance [Unknown]
  - Irritability [Recovered/Resolved]
  - Initial insomnia [Recovered/Resolved]
  - Nicotine dependence [Unknown]
  - Depression [Recovered/Resolved]
  - Product quality issue [Unknown]
